FAERS Safety Report 13210035 (Version 2)
Quarter: 2017Q1

REPORT INFORMATION
  Report Type: Spontaneous
  Country: PT (occurrence: PT)
  Receive Date: 20170210
  Receipt Date: 20170221
  Transmission Date: 20170428
  Serious: Yes (Other)
  Sender: FDA-Public Use
  Company Number: PT-JNJFOC-20170207293

PATIENT
  Age: 66 Year
  Sex: Male

DRUGS (1)
  1. IBRUTINIB [Suspect]
     Active Substance: IBRUTINIB
     Indication: CHRONIC LYMPHOCYTIC LEUKAEMIA
     Route: 048

REACTIONS (5)
  - Pulmonary haemorrhage [Unknown]
  - Central nervous system lesion [Unknown]
  - Lung infection [Unknown]
  - Herpes zoster [Unknown]
  - Acute respiratory distress syndrome [Unknown]
